FAERS Safety Report 24679390 (Version 1)
Quarter: 2024Q4

REPORT INFORMATION
  Report Type: Spontaneous
  Country: GB (occurrence: GB)
  Receive Date: 20241129
  Receipt Date: 20241129
  Transmission Date: 20250114
  Serious: Yes (Other)
  Sender: ACCORD
  Company Number: None

PATIENT
  Age: 86 Year
  Sex: Female

DRUGS (13)
  1. RAMIPRIL [Suspect]
     Active Substance: RAMIPRIL
     Indication: Product used for unknown indication
     Dates: start: 20241111
  2. ROSUVASTATIN CALCIUM [Suspect]
     Active Substance: ROSUVASTATIN CALCIUM
     Indication: Product used for unknown indication
     Dosage: ONE ONCE A DAY
  3. WARFARIN [Concomitant]
     Active Substance: WARFARIN
     Dosage: TAKE AT TEATIME AS PRESCRIBED BASED ON  INTERNATIONAL NORMALISED RATIO (INR)
  4. LEVOTHYROXINE SODIUM [Concomitant]
     Active Substance: LEVOTHYROXINE SODIUM
     Dosage: ONE EVERY MORNING
  5. DOXAZOSIN [Concomitant]
     Active Substance: DOXAZOSIN\DOXAZOSIN MESYLATE
     Dosage: ONE ONCE A DAY
  6. FLECAINIDE [Concomitant]
     Active Substance: FLECAINIDE
     Dosage: ONE TO BE TAKEN MORNING AND EVENING- STOPPED
  7. ACETAMINOPHEN [Concomitant]
     Active Substance: ACETAMINOPHEN
     Dosage: ONE OR TWO FOUR TIMES A DAY AS NEEDED
  8. EDOXABAN [Concomitant]
     Active Substance: EDOXABAN
  9. EZETIMIBE [Concomitant]
     Active Substance: EZETIMIBE
  10. LANSOPRAZOLE [Concomitant]
     Active Substance: LANSOPRAZOLE
     Dosage: ONE OR TWO ONCE A DAY
  11. BISOPROLOL [Concomitant]
     Active Substance: BISOPROLOL
     Dosage: ONE ONCE A DAY
  12. WARFARIN [Concomitant]
     Active Substance: WARFARIN
     Dosage: TAKE AT TEATIME AS PRESCRIBED BASED ON  INTERNATIONAL NORMALISED RATIO (INR)
  13. WARFARIN [Concomitant]
     Active Substance: WARFARIN
     Dosage: TAKE AT TEATIME AS PRESCRIBED BASED ON  INTERNATIONAL NORMALISED RATIO (INR)

REACTIONS (2)
  - Muscle spasms [Recovered/Resolved]
  - Pain [Unknown]
